FAERS Safety Report 6604247-5 (Version None)
Quarter: 2010Q1

REPORT INFORMATION
  Report Type: 
  Country: None (occurrence: None)
  Receive Date: 20100226
  Receipt Date: 20090721
  Transmission Date: 20100710
  Serious: No
  Sender: FDA-Public Use
  Company Number: A0797995A

PATIENT
  Age: 47 Year
  Sex: Female

DRUGS (5)
  1. LAMICTAL CD [Suspect]
     Indication: BIPOLAR DISORDER
     Dosage: 100MG PER DAY
     Route: 048
     Dates: start: 20090601
  2. WELLBUTRIN [Concomitant]
  3. LEVOTHYROXINE SODIUM [Concomitant]
  4. LABETALOL HCL [Concomitant]
  5. CLONAZEPAM [Concomitant]

REACTIONS (2)
  - ANXIETY [None]
  - RASH ERYTHEMATOUS [None]
